FAERS Safety Report 23291334 (Version 1)
Quarter: 2023Q4

REPORT INFORMATION
  Report Type: Spontaneous
  Country: CN (occurrence: CN)
  Receive Date: 20231213
  Receipt Date: 20231213
  Transmission Date: 20240109
  Serious: Yes (Hospitalization, Other)
  Sender: FDA-Public Use
  Company Number: CN-MACLEODS PHARMACEUTICALS US LTD-MAC2023044741

PATIENT

DRUGS (2)
  1. TRIAMCINOLONE ACETONIDE [Suspect]
     Active Substance: TRIAMCINOLONE ACETONIDE
     Indication: Keloid scar
     Dosage: 0.2 MILLILITER, INTRASCAR
     Route: 065
     Dates: start: 20220614
  2. LIDOCAINE [Concomitant]
     Active Substance: LIDOCAINE
     Indication: Keloid scar
     Dosage: 0.2 MILLILITER, INTRASCAR
     Route: 065
     Dates: start: 20220614

REACTIONS (3)
  - Inner ear disorder [Not Recovered/Not Resolved]
  - Embolism arterial [Not Recovered/Not Resolved]
  - Deafness neurosensory [Not Recovered/Not Resolved]

NARRATIVE: CASE EVENT DATE: 20220614
